FAERS Safety Report 19468568 (Version 2)
Quarter: 2021Q3

REPORT INFORMATION
  Report Type: Spontaneous
  Country: DE (occurrence: DE)
  Receive Date: 20210628
  Receipt Date: 20210709
  Transmission Date: 20211014
  Serious: Yes (Death, Other)
  Sender: FDA-Public Use
  Company Number: DE-EMERGENT BIOSOLUTIONS CANADA INC.-21000078LT

PATIENT
  Age: 32 Year
  Sex: Male

DRUGS (1)
  1. CNJ?016 [Suspect]
     Active Substance: HUMAN VACCINIA VIRUS IMMUNE GLOBULIN
     Indication: COW POX
     Dosage: 6000 INTERNATIONAL UNIT/KILOGRAM
     Dates: start: 20190903

REACTIONS (2)
  - Off label use [Recovered/Resolved]
  - Septic shock [Fatal]

NARRATIVE: CASE EVENT DATE: 20190904
